FAERS Safety Report 19385000 (Version 1)
Quarter: 2021Q2

REPORT INFORMATION
  Report Type: Spontaneous
  Country: FR (occurrence: FR)
  Receive Date: 20210608
  Receipt Date: 20210608
  Transmission Date: 20210717
  Serious: Yes (Death, Life-Threatening, Hospitalization, Other)
  Sender: FDA-Public Use
  Company Number: FR-CELLTRION INC.-2021FR007493

PATIENT

DRUGS (11)
  1. RITUXIMAB (UNKNOWN) [Suspect]
     Active Substance: RITUXIMAB
     Dosage: 1 G, EVERY 6 MONTHS FOR 7 YEARS AS MAINTENANCE THERAPY
  2. RITUXIMAB (UNKNOWN) [Suspect]
     Active Substance: RITUXIMAB
     Dosage: 1 G
  3. RITUXIMAB (UNKNOWN) [Suspect]
     Active Substance: RITUXIMAB
     Dosage: 11TH AND FINAL RITUXIMAB INFUSION: 1 G
     Dates: start: 201909
  4. RITUXIMAB (UNKNOWN) [Suspect]
     Active Substance: RITUXIMAB
     Dosage: 1 G, EVERY 6 MONTHS FOR 7 YEARS AS MAINTENANCE THERAPY
  5. RITUXIMAB (UNKNOWN) [Suspect]
     Active Substance: RITUXIMAB
     Dosage: 1 G, EVERY 6 MONTHS FOR 7 YEARS AS MAINTENANCE THERAPY
  6. RITUXIMAB (UNKNOWN) [Suspect]
     Active Substance: RITUXIMAB
     Dosage: 1 G, EVERY 6 MONTHS FOR 7 YEARS AS MAINTENANCE THERAPY
  7. RITUXIMAB (UNKNOWN) [Suspect]
     Active Substance: RITUXIMAB
     Dosage: 1 G, EVERY 6 MONTHS FOR 7 YEARS AS MAINTENANCE THERAPY
  8. RITUXIMAB (UNKNOWN) [Suspect]
     Active Substance: RITUXIMAB
     Dosage: 1 G, EVERY 6 MONTHS FOR 7 YEARS AS MAINTENANCE THERAPY
  9. RITUXIMAB (UNKNOWN) [Suspect]
     Active Substance: RITUXIMAB
     Indication: NEUROMYELITIS OPTICA SPECTRUM DISORDER
     Dosage: 1 G
     Dates: start: 2012
  10. RITUXIMAB (UNKNOWN) [Suspect]
     Active Substance: RITUXIMAB
     Dosage: ON DAY 15
  11. RITUXIMAB (UNKNOWN) [Suspect]
     Active Substance: RITUXIMAB
     Dosage: 1 G, EVERY 6 MONTHS FOR 7 YEARS AS MAINTENANCE THERAPY

REACTIONS (9)
  - Enterovirus myocarditis [Fatal]
  - Ventricular tachycardia [Unknown]
  - Coxsackie viral infection [Unknown]
  - Off label use [Unknown]
  - Myocardial oedema [Unknown]
  - Ejection fraction decreased [Unknown]
  - Cardiac arrest [Unknown]
  - Cardiogenic shock [Unknown]
  - Hypogammaglobulinaemia [Unknown]

NARRATIVE: CASE EVENT DATE: 201911
